FAERS Safety Report 6637997-5 (Version None)
Quarter: 2010Q1

REPORT INFORMATION
  Report Type: 
  Country: None (occurrence: None)
  Receive Date: 20100312
  Receipt Date: 20100301
  Transmission Date: 20100710
  Serious: Yes (Hospitalization, Other)
  Sender: FDA-Public Use
  Company Number: JPI-P-009931

PATIENT
  Age: 59 Year
  Sex: Female
  Weight: 124.7392 kg

DRUGS (1)
  1. XYREM [Suspect]
     Indication: NARCOLEPSY
     Dosage: ORAL, 5 GM (5 GM, 1 IN 1 D), ORAL, 4.5 GM (4.5 GM, 1 IN 1 D), ORAL
     Route: 048
     Dates: start: 20051121

REACTIONS (2)
  - INTERVERTEBRAL DISC PROTRUSION [None]
  - NEURALGIA [None]
